FAERS Safety Report 9624465 (Version 2)
Quarter: 2013Q4

REPORT INFORMATION
  Report Type: Spontaneous
  Country: CN (occurrence: CN)
  Receive Date: 20131015
  Receipt Date: 20131202
  Transmission Date: 20140711
  Serious: Yes (Hospitalization, Other)
  Sender: FDA-Public Use
  Company Number: CN-PFIZER INC-2013294028

PATIENT
  Age: 28 Year
  Sex: Female

DRUGS (2)
  1. ZOLOFT [Suspect]
     Dosage: UNK
     Route: 048
     Dates: start: 2010
  2. BOLANGRUINING [Concomitant]
     Dosage: 8 INJECTIONS

REACTIONS (5)
  - Product quality issue [Unknown]
  - Premature menopause [Unknown]
  - Skin wrinkling [Unknown]
  - Lipoma [Unknown]
  - Haematemesis [Unknown]
